FAERS Safety Report 8907481 (Version 1)
Quarter: 2012Q4

REPORT INFORMATION
  Report Type: 
  Country: IN (occurrence: IN)
  Receive Date: 20121114
  Receipt Date: 20121114
  Transmission Date: 20130627
  Serious: Yes (Death)
  Sender: FDA-Public Use
  Company Number: IN-SANOFI-AVENTIS-2012SA081922

PATIENT
  Age: 57 Year
  Sex: Female

DRUGS (1)
  1. TAXOTERE [Suspect]
     Indication: CERVIX CARCINOMA
     Route: 042
     Dates: start: 20120619, end: 20121022

REACTIONS (1)
  - Renal failure [Fatal]
